FAERS Safety Report 10044212 (Version 2)
Quarter: 2014Q1

REPORT INFORMATION
  Report Type: Spontaneous
  Country: FR (occurrence: FR)
  Receive Date: 20140328
  Receipt Date: 20140331
  Transmission Date: 20141002
  Serious: Yes (Life-Threatening, Hospitalization)
  Sender: FDA-Public Use
  Company Number: FR-ASTRAZENECA-2014SE21409

PATIENT
  Age: 17519 Day
  Sex: Male

DRUGS (2)
  1. BRILIQUE [Suspect]
     Route: 048
     Dates: start: 20140313
  2. ANGIOX [Concomitant]
     Dates: start: 20140313

REACTIONS (2)
  - Cerebral haematoma [Recovered/Resolved with Sequelae]
  - Anaemia [Recovered/Resolved]
